FAERS Safety Report 9082573 (Version 1)
Quarter: 2013Q1

REPORT INFORMATION
  Report Type: Report from Study
  Country: US (occurrence: US)
  Receive Date: 20130131
  Receipt Date: 20130131
  Transmission Date: 20140127
  Serious: No
  Sender: FDA-Public Use
  Company Number: US-ABBOTT-12P-163-0991809-00

PATIENT
  Age: 60 Year
  Sex: Female

DRUGS (11)
  1. HUMIRA [Suspect]
     Indication: PSORIATIC ARTHROPATHY
     Dates: start: 201207
  2. LANTUS [Concomitant]
     Indication: DIABETES MELLITUS
     Dosage: 4 INJECTIONS DAILY
  3. SULFASALAZINE [Concomitant]
     Indication: PSORIATIC ARTHROPATHY
  4. NAPROXEN [Concomitant]
     Indication: PAIN
  5. NAPROXEN [Concomitant]
     Indication: INFLAMMATION
  6. CARDIZEM ER [Concomitant]
     Indication: TACHYCARDIA
     Dosage: 240MG DAILY
  7. LISINOPRIL [Concomitant]
     Indication: HYPERTENSION
     Dosage: 20MG DAILY
  8. FLUOXETINE [Concomitant]
     Indication: DEPRESSION
     Dosage: 20MG DAILY
  9. ASPIRIN [Concomitant]
     Indication: PROPHYLAXIS
     Dosage: 81MG DAILY
  10. PROTANDIM OTC [Concomitant]
     Indication: VITAMIN SUPPLEMENTATION
  11. APIDRA  INSULIN [Concomitant]
     Indication: DIABETES MELLITUS
     Dosage: 4 INJECTIONS DAILY

REACTIONS (4)
  - Increased tendency to bruise [Unknown]
  - Pain [Not Recovered/Not Resolved]
  - Injection site bruising [Unknown]
  - Drug ineffective [Unknown]
